FAERS Safety Report 14245307 (Version 1)
Quarter: 2017Q4

REPORT INFORMATION
  Report Type: Spontaneous
  Country: US (occurrence: US)
  Receive Date: 20171202
  Receipt Date: 20171202
  Transmission Date: 20180321
  Serious: No
  Sender: FDA-Public Use
  Company Number: US-ENDO PHARMACEUTICALS INC-2017-001541

PATIENT
  Age: 48 Year
  Sex: Male

DRUGS (1)
  1. XIAFLEX [Suspect]
     Active Substance: COLLAGENASE CLOSTRIDIUM HISTOLYTICUM
     Indication: PEYRONIE^S DISEASE
     Dosage: 0.9 MG, SINGLE, 1ST CYCLE, 1ST INJECTION
     Route: 026

REACTIONS (4)
  - Penile haemorrhage [Unknown]
  - Blister rupture [Unknown]
  - Penile swelling [Unknown]
  - Blood blister [Unknown]
